FAERS Safety Report 5661234-1 (Version None)
Quarter: 2008Q1

REPORT INFORMATION
  Report Type: 
  Country: None (occurrence: None)
  Receive Date: 20080312
  Receipt Date: 20080305
  Transmission Date: 20080703
  Serious: Yes (Death)
  Sender: FDA-Public Use
  Company Number: A0714715A

PATIENT
  Sex: Male

DRUGS (1)
  1. AEROLIN [Suspect]
     Indication: ASTHMA
     Route: 065

REACTIONS (2)
  - ASTHMATIC CRISIS [None]
  - DEATH [None]
